FAERS Safety Report 4331404-3 (Version None)
Quarter: 2004Q1

REPORT INFORMATION
  Report Type: 
  Country: None (occurrence: None)
  Receive Date: 20040329
  Receipt Date: 20040316
  Transmission Date: 20041129
  Serious: Yes (Hospitalization)
  Sender: FDA-Public Use
  Company Number: NSADSS2002011350

PATIENT
  Age: 67 Year
  Sex: Male

DRUGS (1)
  1. REGRANEX [Suspect]
     Indication: SKIN ULCER
     Dosage: CUTANEOUS
     Route: 003

REACTIONS (2)
  - CELLULITIS [None]
  - RENAL FAILURE [None]
